FAERS Safety Report 6874637-4 (Version None)
Quarter: 2010Q3

REPORT INFORMATION
  Report Type: 
  Country: None (occurrence: None)
  Receive Date: 20100722
  Receipt Date: 20100709
  Transmission Date: 20110219
  Serious: Yes (Life-Threatening, Other)
  Sender: FDA-Public Use
  Company Number: 2010EK000009

PATIENT
  Age: 66 Year
  Sex: Female
  Weight: 123 kg

DRUGS (4)
  1. DEPODUR [Suspect]
     Indication: PROCEDURAL PAIN
     Dosage: 10 MG; X1; ED
     Route: 008
     Dates: start: 20050822, end: 20050822
  2. BETAPACE [Concomitant]
  3. DILAUDID [Concomitant]
  4. LASIX [Concomitant]

REACTIONS (2)
  - ANAEMIA POSTOPERATIVE [None]
  - HYPOTENSION [None]
